FAERS Safety Report 11425177 (Version 2)
Quarter: 2015Q3

REPORT INFORMATION
  Report Type: Spontaneous
  Country: US (occurrence: US)
  Receive Date: 20150821
  Receipt Date: 20150903
  Transmission Date: 20151125
  Serious: No
  Sender: FDA-Public Use
  Company Number: US-ELI_LILLY_AND_COMPANY-US201303000288

PATIENT
  Sex: Female

DRUGS (8)
  1. HUMALOG [Suspect]
     Active Substance: INSULIN LISPRO
     Indication: DIABETES MELLITUS
     Dosage: 5 U, BID
     Dates: start: 201212, end: 201302
  2. KEFLEX [Concomitant]
     Active Substance: CEPHALEXIN
     Dosage: UNK, UNKNOWN
  3. DOCUSATE [Concomitant]
     Active Substance: DOCUSATE
     Dosage: UNK, UNKNOWN
  4. HUMALOG [Suspect]
     Active Substance: INSULIN LISPRO
     Indication: DIABETES MELLITUS
     Dosage: 5 U, BID
     Dates: start: 201212, end: 201302
  5. PARAGESIC [Concomitant]
     Dosage: UNK, UNKNOWN
  6. HUMULIN R [Suspect]
     Active Substance: INSULIN HUMAN
     Indication: DIABETES MELLITUS
     Dosage: 1 U, BID
     Dates: start: 201212, end: 201302
  7. BUMEX [Concomitant]
     Active Substance: BUMETANIDE
     Dosage: UNK, UNKNOWN
  8. HUMAN INSULIN [Suspect]
     Active Substance: INSULIN HUMAN
     Indication: DIABETES MELLITUS
     Dosage: UNK, UNKNOWN
     Dates: start: 201212, end: 201302

REACTIONS (10)
  - Hypersensitivity [Unknown]
  - Nausea [Unknown]
  - Fatigue [Unknown]
  - Migraine [Unknown]
  - Headache [Unknown]
  - Dizziness [Unknown]
  - Wrong drug administered [Unknown]
  - Palpitations [Unknown]
  - Cardiac flutter [Unknown]
  - Vertigo [Unknown]
